FAERS Safety Report 15324254 (Version 1)
Quarter: 2018Q3

REPORT INFORMATION
  Report Type: Report from Study
  Country: US (occurrence: US)
  Receive Date: 20180828
  Receipt Date: 20180828
  Transmission Date: 20181010
  Serious: Yes (Hospitalization, Other)
  Sender: FDA-Public Use
  Company Number: US-BRISTOL-MYERS SQUIBB COMPANY-BMS-2018-078887

PATIENT
  Age: 75 Year
  Sex: Male
  Weight: 79.4 kg

DRUGS (2)
  1. NIVOLUMAB [Suspect]
     Active Substance: NIVOLUMAB
     Indication: ADENOCARCINOMA
     Dosage: 480 MG, UNK
     Route: 065
     Dates: start: 20180418
  2. IPILIMUMAB [Suspect]
     Active Substance: IPILIMUMAB
     Indication: ADENOCARCINOMA
     Dosage: 83 MG, UNK
     Route: 065
     Dates: start: 20180404

REACTIONS (6)
  - Blood bilirubin increased [Unknown]
  - Embolism [Unknown]
  - Alanine aminotransferase increased [Unknown]
  - Hypoxia [Unknown]
  - Aspartate aminotransferase increased [Unknown]
  - Bile duct obstruction [Unknown]

NARRATIVE: CASE EVENT DATE: 20180428
